FAERS Safety Report 6788542-5 (Version None)
Quarter: 2010Q2

REPORT INFORMATION
  Report Type: 
  Country: None (occurrence: None)
  Receive Date: 20100623
  Receipt Date: 20080325
  Transmission Date: 20101027
  Serious: Yes (Other)
  Sender: FDA-Public Use
  Company Number: US-PFIZER INC-2008028014

PATIENT
  Age: 16 Year
  Sex: Male

DRUGS (1)
  1. GEODON [Suspect]

REACTIONS (1)
  - SWOLLEN TONGUE [None]
